FAERS Safety Report 8663154 (Version 4)
Quarter: 2013Q4

REPORT INFORMATION
  Report Type: Spontaneous
  Country: US (occurrence: US)
  Receive Date: 20120713
  Receipt Date: 20131107
  Transmission Date: 20140711
  Serious: Yes (Other)
  Sender: FDA-Public Use
  Company Number: US-009507513-1207USA001324

PATIENT
  Age: 53 Year
  Sex: Male
  Weight: 92.97 kg

DRUGS (7)
  1. PEGINTRON [Suspect]
     Indication: HEPATITIS C
     Dosage: 150 MICROGRAM, QW
     Route: 058
     Dates: start: 20120309
  2. REBETOL [Suspect]
     Indication: HEPATITIS C
     Dosage: UNK MG, UNK
     Route: 048
     Dates: start: 20120309
  3. TELAPREVIR [Concomitant]
     Indication: HEPATITIS C
     Dosage: UNK
     Dates: start: 20120309
  4. XANAX [Concomitant]
     Dosage: UNK MG, UNK
  5. AMBIEN [Concomitant]
     Dosage: UNK MG, UNK
  6. VALIUM [Concomitant]
     Dosage: UNK MG, UNK
  7. ADVIL [Concomitant]
     Dosage: UNK MG, UNK

REACTIONS (25)
  - Glucose tolerance impaired [Unknown]
  - Polyuria [Unknown]
  - Hypoaesthesia [Unknown]
  - Neck pain [Unknown]
  - Visual impairment [Unknown]
  - Anaemia [Unknown]
  - Feeling abnormal [Unknown]
  - Mental impairment [Unknown]
  - Tremor [Unknown]
  - Oropharyngeal discomfort [Unknown]
  - Dry mouth [Unknown]
  - Breath odour [Unknown]
  - Sinus congestion [Unknown]
  - Sleep disorder [Unknown]
  - Mood altered [Unknown]
  - Pain [Unknown]
  - Headache [Unknown]
  - Dizziness [Unknown]
  - Depression [Unknown]
  - Pyrexia [Unknown]
  - Myalgia [Unknown]
  - Asthenia [Unknown]
  - Nausea [Unknown]
  - Chest pain [Unknown]
  - Paraesthesia [Unknown]
